FAERS Safety Report 15362174 (Version 3)
Quarter: 2018Q4

REPORT INFORMATION
  Report Type: Report from Study
  Country: CO (occurrence: CO)
  Receive Date: 20180907
  Receipt Date: 20181117
  Transmission Date: 20190204
  Serious: Yes (Hospitalization, Other)
  Sender: FDA-Public Use
  Company Number: PHHY2018CO092847

PATIENT
  Age: 0 Day
  Sex: Female
  Weight: 3.15 kg

DRUGS (1)
  1. REVOLADE [Suspect]
     Active Substance: ELTROMBOPAG
     Indication: FOETAL EXPOSURE DURING PREGNANCY
     Dosage: (MATERNAL DOSE: 25 MG, QD)
     Route: 064

REACTIONS (9)
  - Thrombocytopenic purpura [Recovered/Resolved]
  - Haematoma [Recovered/Resolved]
  - Lactose intolerance [Recovered/Resolved]
  - Petechiae [Recovered/Resolved]
  - Thrombocytopenia [Unknown]
  - Contusion [Recovered/Resolved]
  - Meconium aspiration syndrome [Recovered/Resolved]
  - Anaemia [Unknown]
  - Foetal exposure during pregnancy [Unknown]

NARRATIVE: CASE EVENT DATE: 20180811
